FAERS Safety Report 16073078 (Version 2)
Quarter: 2019Q2

REPORT INFORMATION
  Report Type: Report from Study
  Country: None (occurrence: US)
  Receive Date: 20190314
  Receipt Date: 20190404
  Transmission Date: 20190711
  Serious: Yes (Other)
  Sender: FDA-Public Use
  Company Number: US-ABBVIE-19S-163-2699942-00

PATIENT
  Age: 73 Year
  Sex: Male

DRUGS (13)
  1. CREON [Suspect]
     Active Substance: PANCRELIPASE AMYLASE\PANCRELIPASE LIPASE\PANCRELIPASE PROTEASE
     Indication: PANCREATIC CARCINOMA
     Dosage: 1-2 CAPSULES WITH EACH MEAL AND ONE WITH SNACK
     Route: 048
     Dates: start: 20181114, end: 201903
  2. CREON [Suspect]
     Active Substance: PANCRELIPASE AMYLASE\PANCRELIPASE LIPASE\PANCRELIPASE PROTEASE
     Indication: PANCREATIC FAILURE
     Dosage: 3 CAPSULES WITH EACH MEAL AND 2 WITH A SNACK
     Route: 048
     Dates: start: 201903
  3. VITAMIN D3 [Concomitant]
     Active Substance: CHOLECALCIFEROL
     Indication: ROUTINE HEALTH MAINTENANCE
  4. NOVOLOG [Concomitant]
     Active Substance: INSULIN ASPART
     Indication: DIABETES MELLITUS
  5. LANTUS [Concomitant]
     Active Substance: INSULIN GLARGINE
     Indication: DIABETES MELLITUS
  6. LORAZEPAM. [Concomitant]
     Active Substance: LORAZEPAM
     Indication: SLEEP DISORDER THERAPY
  7. METOPROLOL. [Concomitant]
     Active Substance: METOPROLOL
     Indication: HYPERTENSION
  8. LORAZEPAM. [Concomitant]
     Active Substance: LORAZEPAM
     Indication: NAUSEA
  9. GABAPENTIN. [Concomitant]
     Active Substance: GABAPENTIN
     Indication: NEUROPATHY PERIPHERAL
  10. NORCO [Concomitant]
     Active Substance: ACETAMINOPHEN\HYDROCODONE BITARTRATE
     Indication: PAIN
  11. COZAAR [Concomitant]
     Active Substance: LOSARTAN POTASSIUM
     Indication: HYPERTENSION
  12. ONDANSETRON [Concomitant]
     Active Substance: ONDANSETRON
     Indication: NAUSEA
  13. ASPIRIN. [Concomitant]
     Active Substance: ASPIRIN
     Indication: CARDIOVASCULAR EVENT PROPHYLAXIS

REACTIONS (5)
  - General symptom [Unknown]
  - Lymphadenopathy [Unknown]
  - Pancreatic failure [Unknown]
  - Pancreatic carcinoma [Unknown]
  - Diarrhoea [Recovering/Resolving]

NARRATIVE: CASE EVENT DATE: 201812
